FAERS Safety Report 8508205-5 (Version None)
Quarter: 2012Q2

REPORT INFORMATION
  Report Type: 
  Country: None (occurrence: None)
  Receive Date: 20120405
  Receipt Date: 20090422
  Transmission Date: 20120825
  Serious: Yes (Other)
  Sender: FDA-Public Use
  Company Number: PHEH2009US03809

PATIENT
  Age: 53 Year
  Sex: Female

DRUGS (8)
  1. LEVOTHYROXINE SODIUM [Concomitant]
  2. CALCIUM WITH VITAMIN D (CALCIUM PHOSPHATE, CALCIUM SODIUM LACTATE, ERG [Concomitant]
  3. ASPIRIN [Concomitant]
  4. FLAXSEED OIL (LINUM USITATISSIMUM SEED OIL) [Concomitant]
  5. SILVER [Concomitant]
  6. PRILOSEC [Concomitant]
  7. SIMVASTATIN [Concomitant]
  8. RECLAST [Suspect]
     Indication: OSTEOPENIA
     Dosage: 5 MG, ONCE/SINGLE, INFUSION
     Dates: start: 20090401, end: 20090401

REACTIONS (4)
  - PYREXIA [None]
  - RASH GENERALISED [None]
  - MYALGIA [None]
  - CHILLS [None]
